FAERS Safety Report 4321010-9 (Version None)
Quarter: 2004Q1

REPORT INFORMATION
  Report Type: 
  Country: None (occurrence: None)
  Receive Date: 20040303
  Receipt Date: 20030610
  Transmission Date: 20041129
  Serious: No
  Sender: FDA-Public Use
  Company Number: 2003SA000121

PATIENT
  Sex: Female

DRUGS (5)
  1. THYMOGLOBULIN [Suspect]
     Indication: RENAL TRANSPLANT
     Dosage: 78.6 MG X1 INTRAVENOUS
     Route: 042
     Dates: start: 20030513, end: 20030513
  2. CELLCEPT [Concomitant]
  3. TACROLIMUS [Concomitant]
  4. HYDROCORTISONE [Concomitant]
  5. FENTANYL [Concomitant]

REACTIONS (6)
  - BLOOD DISORDER [None]
  - CATHETER SITE DISCHARGE [None]
  - GRAFT DYSFUNCTION [None]
  - PLATELET COUNT DECREASED [None]
  - POST PROCEDURAL COMPLICATION [None]
  - TRANSPLANT REJECTION [None]
